FAERS Safety Report 11315817 (Version 1)
Quarter: 2015Q3

REPORT INFORMATION
  Report Type: Report from Study
  Country: CA (occurrence: CA)
  Receive Date: 20150728
  Receipt Date: 20150728
  Transmission Date: 20151125
  Serious: Yes (Other)
  Sender: FDA-Public Use
  Company Number: CA-ALEXION PHARMACEUTICALS INC-A201501814

PATIENT

DRUGS (7)
  1. POTASSIUM [Concomitant]
     Active Substance: POTASSIUM
     Indication: SUPPLEMENTATION THERAPY
     Dosage: UNK, QD
     Route: 048
     Dates: start: 20140501
  2. SOLIRIS [Suspect]
     Active Substance: ECULIZUMAB
     Dosage: 900 MG, Q2W
     Route: 042
     Dates: start: 20141001
  3. FOLIC ACID. [Concomitant]
     Active Substance: FOLIC ACID
     Indication: SUPPLEMENTATION THERAPY
     Dosage: 1000 ?G, QD
     Route: 048
     Dates: start: 20140501
  4. IRON [Concomitant]
     Active Substance: IRON
     Indication: SUPPLEMENTATION THERAPY
     Dosage: UNK, QD
     Route: 048
     Dates: start: 20140501
  5. SOLIRIS [Suspect]
     Active Substance: ECULIZUMAB
     Indication: PAROXYSMAL NOCTURNAL HAEMOGLOBINURIA
     Dosage: 600 MG, QW
     Route: 042
     Dates: start: 20140904, end: 20140924
  6. PRENATAL VITAMINS                  /07426201/ [Concomitant]
     Active Substance: ASCORBIC ACID\BIOTIN\MINERALS\NIACIN\RETINOL\TOCOPHEROL\VITAMIN B\VITAMIN D
     Indication: SUPPLEMENTATION THERAPY
     Dosage: UNK, QD
     Route: 048
     Dates: start: 20140501
  7. FRAGMIN [Concomitant]
     Active Substance: DALTEPARIN SODIUM
     Indication: ANTICOAGULANT THERAPY
     Dosage: UNK, QD
     Route: 058
     Dates: start: 20140815

REACTIONS (13)
  - Erythema [Unknown]
  - Pallor [Unknown]
  - Productive cough [Recovering/Resolving]
  - Nasopharyngitis [Recovering/Resolving]
  - Sputum discoloured [Recovered/Resolved]
  - Skin lesion [Unknown]
  - Exposure during pregnancy [Recovered/Resolved]
  - Nasal congestion [Recovering/Resolving]
  - Chills [Recovering/Resolving]
  - Pruritus [Unknown]
  - Gestational diabetes [Unknown]
  - Oropharyngeal pain [Recovering/Resolving]
  - Haemolysis [Unknown]

NARRATIVE: CASE EVENT DATE: 201410
